FAERS Safety Report 6173245-0 (Version None)
Quarter: 2009Q2

REPORT INFORMATION
  Report Type: 
  Country: None (occurrence: None)
  Receive Date: 20090430
  Receipt Date: 20090415
  Transmission Date: 20091009
  Serious: Yes (Other)
  Sender: FDA-Public Use
  Company Number: US-BAYER-200919477GPV

PATIENT
  Age: 64 Year
  Sex: Male

DRUGS (3)
  1. REFLUDAN [Suspect]
     Indication: ARTERIAL THROMBOSIS LIMB
     Route: 065
  2. HEPARIN [Concomitant]
     Indication: ARTERIAL THROMBOSIS LIMB
     Route: 042
  3. PROSTAGLANDIN E1 [Concomitant]
     Indication: DRUG USE FOR UNKNOWN INDICATION

REACTIONS (2)
  - COLON CANCER [None]
  - PERIPHERAL ISCHAEMIA [None]
